FAERS Safety Report 21826686 (Version 1)
Quarter: 2023Q1

REPORT INFORMATION
  Report Type: Spontaneous
  Country: US (occurrence: US)
  Receive Date: 20230106
  Receipt Date: 20230106
  Transmission Date: 20230417
  Serious: Yes (Hospitalization, Other)
  Sender: FDA-Public Use
  Company Number: US-AMGEN-USASP2022226477

PATIENT
  Age: 85 Year
  Sex: Female

DRUGS (33)
  1. IMLYGIC [Suspect]
     Active Substance: TALIMOGENE LAHERPAREPVEC
     Indication: Malignant melanoma
     Dosage: 1 M PFU
     Route: 065
     Dates: start: 20211110
  2. IMLYGIC [Suspect]
     Active Substance: TALIMOGENE LAHERPAREPVEC
     Dosage: 100 M PFU
     Route: 065
     Dates: start: 20211203
  3. IMLYGIC [Suspect]
     Active Substance: TALIMOGENE LAHERPAREPVEC
     Dosage: 100 M PFU
     Route: 065
     Dates: start: 20220107
  4. IMLYGIC [Suspect]
     Active Substance: TALIMOGENE LAHERPAREPVEC
     Dosage: 100 M PFU
     Route: 065
     Dates: start: 20211217
  5. IMLYGIC [Suspect]
     Active Substance: TALIMOGENE LAHERPAREPVEC
     Dosage: 100 M PFU
     Route: 065
     Dates: start: 20211203
  6. IMLYGIC [Suspect]
     Active Substance: TALIMOGENE LAHERPAREPVEC
     Dosage: 100 M PFU
     Route: 065
     Dates: start: 20220121
  7. IMLYGIC [Suspect]
     Active Substance: TALIMOGENE LAHERPAREPVEC
     Dosage: 100 M PFU
     Route: 065
     Dates: start: 20220204
  8. IMLYGIC [Suspect]
     Active Substance: TALIMOGENE LAHERPAREPVEC
     Dosage: 100 M PFU
     Route: 065
     Dates: start: 20220218
  9. IMLYGIC [Suspect]
     Active Substance: TALIMOGENE LAHERPAREPVEC
     Dosage: 100 M PFU
     Route: 065
     Dates: start: 20220304
  10. IMLYGIC [Suspect]
     Active Substance: TALIMOGENE LAHERPAREPVEC
     Dosage: 100 M PFU
     Route: 065
     Dates: start: 20220318
  11. IMLYGIC [Suspect]
     Active Substance: TALIMOGENE LAHERPAREPVEC
     Dosage: 100 M PFU
     Route: 065
     Dates: start: 20220415
  12. IMLYGIC [Suspect]
     Active Substance: TALIMOGENE LAHERPAREPVEC
     Dosage: 100 M PFU
     Route: 065
     Dates: start: 20220506
  13. IMLYGIC [Suspect]
     Active Substance: TALIMOGENE LAHERPAREPVEC
     Dosage: 100 M PFU
     Route: 065
     Dates: start: 20220520
  14. IMLYGIC [Suspect]
     Active Substance: TALIMOGENE LAHERPAREPVEC
     Dosage: 100 M PFU
     Route: 065
     Dates: start: 20220603
  15. IMLYGIC [Suspect]
     Active Substance: TALIMOGENE LAHERPAREPVEC
     Dosage: 100 M PFU
     Route: 065
     Dates: start: 20220617
  16. IMLYGIC [Suspect]
     Active Substance: TALIMOGENE LAHERPAREPVEC
     Dosage: 100 M PFU
     Route: 065
     Dates: start: 20220701
  17. IMLYGIC [Suspect]
     Active Substance: TALIMOGENE LAHERPAREPVEC
     Dosage: 100 M PFU
     Route: 065
     Dates: start: 20220715
  18. IMLYGIC [Suspect]
     Active Substance: TALIMOGENE LAHERPAREPVEC
     Dosage: 100 M PFU
     Route: 065
     Dates: start: 20220805
  19. IMLYGIC [Suspect]
     Active Substance: TALIMOGENE LAHERPAREPVEC
     Dosage: 100 M PFU
     Route: 065
     Dates: start: 20220819
  20. ASPIRIN [Concomitant]
     Active Substance: ASPIRIN
  21. CARBIDOPA AND LEVODOPA [Concomitant]
     Active Substance: CARBIDOPA\LEVODOPA
  22. CARVEDILOL [Concomitant]
     Active Substance: CARVEDILOL
  23. FLONASE [Concomitant]
     Active Substance: FLUTICASONE PROPIONATE
  24. VITAMIN D2 [Concomitant]
     Active Substance: ERGOCALCIFEROL
  25. DOCUSATE SODIUM [Concomitant]
     Active Substance: DOCUSATE SODIUM
  26. FUROSEMIDE [Concomitant]
     Active Substance: FUROSEMIDE
  27. GABAPENTIN [Concomitant]
     Active Substance: GABAPENTIN
  28. IMODIUM [Concomitant]
     Active Substance: LOPERAMIDE HYDROCHLORIDE
  29. OMEPRAZOLE [Concomitant]
     Active Substance: OMEPRAZOLE
  30. TRAZODONE HCL [Concomitant]
     Active Substance: TRAZODONE HYDROCHLORIDE
  31. VALSARTAN [Concomitant]
     Active Substance: VALSARTAN
  32. HYDROCHLOROTHIAZIDE [Concomitant]
     Active Substance: HYDROCHLOROTHIAZIDE
  33. XARELTO [Concomitant]
     Active Substance: RIVAROXABAN

REACTIONS (2)
  - Sepsis [Recovered/Resolved]
  - Urinary tract infection [Recovered/Resolved]

NARRATIVE: CASE EVENT DATE: 20220819
